FAERS Safety Report 5801358-9 (Version None)
Quarter: 2008Q3

REPORT INFORMATION
  Report Type: 
  Country: None (occurrence: None)
  Receive Date: 20080703
  Receipt Date: 20080703
  Transmission Date: 20090109
  Serious: No
  Sender: FDA-Public Use
  Company Number: None

PATIENT
  Age: 51 Year
  Sex: Female
  Weight: 88.4514 kg

DRUGS (2)
  1. CEFAZOLIN [Suspect]
     Indication: PREOPERATIVE CARE
     Dosage: IVPB 1G TO MIN OVER 15 MINUTES
     Route: 042
     Dates: start: 20050901, end: 20070901
  2. CEFAZOLIN [Suspect]
     Indication: PREOPERATIVE CARE
     Dosage: IVPB 1G TO MIN OVER 15 MINUTES
     Route: 042
     Dates: start: 20080626

REACTIONS (3)
  - NAUSEA [None]
  - PRURITUS [None]
  - VOMITING [None]
